FAERS Safety Report 4513142-7 (Version None)
Quarter: 2004Q4

REPORT INFORMATION
  Report Type: 
  Country: None (occurrence: None)
  Receive Date: 20041130
  Receipt Date: 20041013
  Transmission Date: 20050328
  Serious: Yes (Hospitalization)
  Sender: FDA-Public Use
  Company Number: US-SOLVAY-00204003714

PATIENT
  Age: 787 Month
  Sex: Female
  Weight: 52 kg

DRUGS (5)
  1. AMBIEN [Concomitant]
     Indication: INSOMNIA
     Dosage: DAILY DOSE: 10 MILLIGRAM(S)
     Route: 048
     Dates: start: 20041023
  2. MARINOL [Suspect]
     Indication: VOMITING
     Dosage: DAILY DOSE: 2.5 MILLIGRAM(S)
     Route: 048
     Dates: start: 20040901, end: 20040903
  3. KLONOPIN [Concomitant]
     Indication: VOMITING
     Dosage: DAILY DOSE: 1 MILLIGRAM(S)
     Route: 048
     Dates: start: 20040816, end: 20041015
  4. ATIVAN [Concomitant]
     Indication: ANXIETY
     Dosage: DAILY DOSE: 3 MILLIGRAM(S)
     Route: 048
     Dates: start: 20040915
  5. METOPROLOL [Concomitant]
     Indication: BLOOD PRESSURE
     Dosage: DAILY DOSE: 50 MILLIGRAM(S)
     Route: 048
     Dates: start: 20040801

REACTIONS (4)
  - DEHYDRATION [None]
  - DRUG INEFFECTIVE [None]
  - ELECTROLYTE IMBALANCE [None]
  - FULL BLOOD COUNT ABNORMAL [None]
